FAERS Safety Report 17040430 (Version 1)
Quarter: 2019Q4

REPORT INFORMATION
  Report Type: Spontaneous
  Country: US (occurrence: US)
  Receive Date: 20191117
  Receipt Date: 20191117
  Transmission Date: 20200122
  Serious: No
  Sender: FDA-Public Use
  Company Number: US-TORRENT-00008789

PATIENT
  Age: 38 Year
  Sex: Male
  Weight: 99 kg

DRUGS (1)
  1. LOSARTAN. [Suspect]
     Active Substance: LOSARTAN
     Indication: HYPERTENSION
     Dates: start: 201603, end: 201902

REACTIONS (2)
  - Chest pain [Unknown]
  - Vision blurred [Unknown]
